FAERS Safety Report 16166313 (Version 5)
Quarter: 2023Q2

REPORT INFORMATION
  Report Type: Report from Study
  Country: MX (occurrence: MX)
  Receive Date: 20190406
  Receipt Date: 20230606
  Transmission Date: 20230722
  Serious: Yes (Hospitalization)
  Sender: FDA-Public Use
  Company Number: MX-UCBSA-2019014509

PATIENT
  Age: 13 Year
  Sex: Male
  Weight: 70 kg

DRUGS (6)
  1. CERTOLIZUMAB PEGOL [Suspect]
     Active Substance: CERTOLIZUMAB PEGOL
     Indication: Juvenile idiopathic arthritis
     Dosage: 100 MILLIGRAM, EV 2 WEEKS(QOW)
     Route: 058
     Dates: start: 20141208, end: 20230327
  2. METHOTREXATE [Concomitant]
     Active Substance: METHOTREXATE
     Indication: Juvenile idiopathic arthritis
     Dosage: 17.5 MG, WEEKLY (QW)
     Route: 048
     Dates: start: 20140818
  3. FOLIC ACID [Concomitant]
     Active Substance: FOLIC ACID
     Indication: Juvenile idiopathic arthritis
     Dosage: 5 MG, 3X/WEEK
     Route: 048
     Dates: start: 20140818
  4. CALCIUM\VITAMIN D [Concomitant]
     Active Substance: CALCIUM\VITAMIN D
     Indication: Product used for unknown indication
     Dosage: 600 MG, ONCE DAILY (QD)
     Route: 048
     Dates: start: 20140818
  5. OMEGA 3 [Concomitant]
     Active Substance: CAPSAICIN
     Indication: Metabolic syndrome
     Dosage: 1 G, ONCE DAILY (QD)
     Route: 048
     Dates: start: 20170623
  6. ISONIAZID [Concomitant]
     Active Substance: ISONIAZID
     Indication: Latent tuberculosis
     Dosage: 300 MG, ONCE DAILY (QD)
     Route: 048
     Dates: start: 20181001

REACTIONS (1)
  - Sepsis [Recovered/Resolved]

NARRATIVE: CASE EVENT DATE: 20190401
